FAERS Safety Report 23114425 (Version 3)
Quarter: 2023Q4

REPORT INFORMATION
  Report Type: Spontaneous
  Country: GR (occurrence: GR)
  Receive Date: 20231027
  Receipt Date: 20231117
  Transmission Date: 20240109
  Serious: Yes (Other)
  Sender: FDA-Public Use
  Company Number: None

PATIENT
  Sex: Male

DRUGS (8)
  1. LEVETIRACETAM [Suspect]
     Active Substance: LEVETIRACETAM
     Indication: Neonatal seizure
     Dosage: UNK
  2. LEVETIRACETAM [Suspect]
     Active Substance: LEVETIRACETAM
     Indication: Epileptic encephalopathy
  3. LEVETIRACETAM [Suspect]
     Active Substance: LEVETIRACETAM
     Indication: Off label use
  4. MIDAZOLAM [Suspect]
     Active Substance: MIDAZOLAM
     Indication: Neonatal seizure
     Dosage: UNK
  5. MIDAZOLAM [Suspect]
     Active Substance: MIDAZOLAM
     Indication: Epileptic encephalopathy
  6. MIDAZOLAM [Suspect]
     Active Substance: MIDAZOLAM
     Indication: Off label use
  7. PHENOBARBITAL [Suspect]
     Active Substance: PHENOBARBITAL
     Indication: Neonatal seizure
     Dosage: UNK
  8. PHENOBARBITAL [Suspect]
     Active Substance: PHENOBARBITAL
     Indication: Epileptic encephalopathy

REACTIONS (4)
  - Neonatal cholestasis [Unknown]
  - Hyperbilirubinaemia neonatal [Unknown]
  - Liver disorder [Unknown]
  - Off label use [Unknown]
